FAERS Safety Report 4404282-1 (Version None)
Quarter: 2004Q3

REPORT INFORMATION
  Report Type: 
  Country: None (occurrence: None)
  Receive Date: 20040713
  Receipt Date: 20040630
  Transmission Date: 20050211
  Serious: Yes (Other)
  Sender: FDA-Public Use
  Company Number: 200410517BCA

PATIENT
  Age: 21 Year
  Sex: Female

DRUGS (113)
  1. PLASBUMIN-25 [Suspect]
     Dosage: SEE IMAGE
     Route: 042
     Dates: start: 19891106
  2. PLASBUMIN-25 [Suspect]
     Dosage: SEE IMAGE
     Route: 042
     Dates: start: 19891111
  3. PLASBUMIN-25 [Suspect]
     Dosage: SEE IMAGE
     Route: 042
     Dates: start: 19891115
  4. PLASBUMIN-25 [Suspect]
     Dosage: SEE IMAGE
     Route: 042
     Dates: start: 19891116
  5. PLASBUMIN-25 [Suspect]
     Dosage: SEE IMAGE
     Route: 042
     Dates: start: 19891118
  6. PLASBUMIN-25 [Suspect]
     Dosage: SEE IMAGE
     Route: 042
     Dates: start: 19891119
  7. PLASBUMIN-25 [Suspect]
  8. RED BLOOD CELLS [Suspect]
     Dosage: ONCE INTRAVENOUS
     Route: 042
     Dates: start: 19891105
  9. RED BLOOD CELLS [Suspect]
     Dosage: ONCE INTRAVENOUS
     Route: 042
     Dates: start: 19891105
  10. RED BLOOD CELLS [Suspect]
     Dosage: ONCE INTRAVENOUS
     Route: 042
     Dates: start: 19891105
  11. RED BLOOD CELLS [Suspect]
     Dosage: ONCE INTRAVENOUS
     Route: 042
     Dates: start: 19891105
  12. RED BLOOD CELLS [Suspect]
     Dosage: ONCE INTRAVENOUS
     Route: 042
     Dates: start: 19891105
  13. RED BLOOD CELLS [Suspect]
     Dosage: ONCE INTRAVENOUS
     Route: 042
     Dates: start: 19891106
  14. RED BLOOD CELLS [Suspect]
     Dosage: ONCE INTRAVENOUS
     Route: 042
     Dates: start: 19891109
  15. RED BLOOD CELLS [Suspect]
     Dosage: ONCE INTRAVENOUS
     Route: 042
     Dates: start: 19891109
  16. RED BLOOD CELLS [Suspect]
     Dosage: ONCE INTRAVENOUS
     Route: 042
     Dates: start: 19891109
  17. RED BLOOD CELLS [Suspect]
     Dosage: ONCE INTRAVENOUS
     Route: 042
     Dates: start: 19891110
  18. RED BLOOD CELLS [Suspect]
     Dosage: ONCE INTRAVENOUS
     Route: 042
     Dates: start: 19891110
  19. RED BLOOD CELLS [Suspect]
     Dosage: ONCE INTRAVENOUS
     Route: 042
     Dates: start: 19891111
  20. RED BLOOD CELLS [Suspect]
     Dosage: ONCE INTRAVENOUS
     Route: 042
     Dates: start: 19891111
  21. RED BLOOD CELLS [Suspect]
     Dosage: ONCE INTRAVENOUS
     Route: 042
     Dates: start: 19891112
  22. RED BLOOD CELLS [Suspect]
     Dosage: ONCE INTRAVENOUS
     Route: 042
     Dates: start: 19891112
  23. RED BLOOD CELLS [Suspect]
     Dosage: ONCE INTRAVENOUS
     Route: 042
     Dates: start: 19891115
  24. RED BLOOD CELLS [Suspect]
     Dosage: ONCE INTRAVENOUS
     Route: 042
     Dates: start: 19891116
  25. RED BLOOD CELLS [Suspect]
  26. RED BLOOD CELLS [Suspect]
  27. RED BLOOD CELLS [Suspect]
  28. RED BLOOD CELLS [Suspect]
  29. RED BLOOD CELLS [Suspect]
  30. RED BLOOD CELLS [Suspect]
  31. RED BLOOD CELLS [Suspect]
  32. RED BLOOD CELLS [Suspect]
  33. RED BLOOD CELLS [Suspect]
  34. RED BLOOD CELLS [Suspect]
  35. RED BLOOD CELLS [Suspect]
  36. RED BLOOD CELLS [Suspect]
  37. RED BLOOD CELLS [Suspect]
  38. RED BLOOD CELLS [Suspect]
  39. RED BLOOD CELLS [Suspect]
  40. RED BLOOD CELLS [Suspect]
  41. PLATELETS (PLATELETS, HUMAN BLOOD) [Suspect]
     Dosage: ONCE, INTRAVENOUS
     Route: 042
     Dates: start: 19891105
  42. PLATELETS (PLATELETS, HUMAN BLOOD) [Suspect]
     Dosage: ONCE, INTRAVENOUS
     Route: 042
     Dates: start: 19891105
  43. PLATELETS (PLATELETS, HUMAN BLOOD) [Suspect]
     Dosage: ONCE, INTRAVENOUS
     Route: 042
     Dates: start: 19891105
  44. PLATELETS (PLATELETS, HUMAN BLOOD) [Suspect]
     Dosage: ONCE, INTRAVENOUS
     Route: 042
     Dates: start: 19891105
  45. PLATELETS (PLATELETS, HUMAN BLOOD) [Suspect]
     Dosage: ONCE, INTRAVENOUS
     Route: 042
     Dates: start: 19891105
  46. PLATELETS (PLATELETS, HUMAN BLOOD) [Suspect]
     Dosage: ONCE, INTRAVENOUS
     Route: 042
     Dates: start: 19891105
  47. PLATELETS (PLATELETS, HUMAN BLOOD) [Suspect]
     Dosage: ONCE, INTRAVENOUS
     Route: 042
     Dates: start: 19891107
  48. PLATELETS (PLATELETS, HUMAN BLOOD) [Suspect]
     Dosage: ONCE, INTRAVENOUS
     Route: 042
     Dates: start: 19891107
  49. PLATELETS (PLATELETS, HUMAN BLOOD) [Suspect]
     Dosage: ONCE, INTRAVENOUS
     Route: 042
     Dates: start: 19891107
  50. PLATELETS (PLATELETS, HUMAN BLOOD) [Suspect]
     Dosage: ONCE, INTRAVENOUS
     Route: 042
     Dates: start: 19891107
  51. PLATELETS (PLATELETS, HUMAN BLOOD) [Suspect]
     Dosage: ONCE, INTRAVENOUS
     Route: 042
     Dates: start: 19891107
  52. PLATELETS (PLATELETS, HUMAN BLOOD) [Suspect]
     Dosage: ONCE, INTRAVENOUS
     Route: 042
     Dates: start: 19891107
  53. PLATELETS (PLATELETS, HUMAN BLOOD) [Suspect]
     Dosage: ONCE, INTRAVENOUS
     Route: 042
     Dates: start: 19891108
  54. PLATELETS (PLATELETS, HUMAN BLOOD) [Suspect]
     Dosage: ONCE, INTRAVENOUS
     Route: 042
     Dates: start: 19891108
  55. PLATELETS (PLATELETS, HUMAN BLOOD) [Suspect]
     Dosage: ONCE, INTRAVENOUS
     Route: 042
     Dates: start: 19891108
  56. PLATELETS (PLATELETS, HUMAN BLOOD) [Suspect]
     Dosage: ONCE, INTRAVENOUS
     Route: 042
     Dates: start: 19891108
  57. PLATELETS (PLATELETS, HUMAN BLOOD) [Suspect]
     Dosage: ONCE, INTRAVENOUS
     Route: 042
     Dates: start: 19891108
  58. PLATELETS (PLATELETS, HUMAN BLOOD) [Suspect]
     Dosage: ONCE, INTRAVENOUS
     Route: 042
     Dates: start: 19891108
  59. PLATELETS (PLATELETS, HUMAN BLOOD) [Suspect]
     Dosage: ONCE, INTRAVENOUS
     Route: 042
     Dates: start: 19891109
  60. PLATELETS (PLATELETS, HUMAN BLOOD) [Suspect]
     Dosage: ONCE, INTRAVENOUS
     Route: 042
     Dates: start: 19891109
  61. PLATELETS (PLATELETS, HUMAN BLOOD) [Suspect]
     Dosage: ONCE, INTRAVENOUS
     Route: 042
     Dates: start: 19891109
  62. PLATELETS (PLATELETS, HUMAN BLOOD) [Suspect]
     Dosage: ONCE, INTRAVENOUS
     Route: 042
     Dates: start: 19891109
  63. PLATELETS (PLATELETS, HUMAN BLOOD) [Suspect]
     Dosage: ONCE, INTRAVENOUS
     Route: 042
     Dates: start: 19891109
  64. PLATELETS (PLATELETS, HUMAN BLOOD) [Suspect]
     Dosage: ONCE, INTRAVENOUS
     Route: 042
     Dates: start: 19891109
  65. PLATELETS (PLATELETS, HUMAN BLOOD) [Suspect]
     Dosage: ONCE, INTRAVENOUS
     Route: 042
     Dates: start: 19891112
  66. PLATELETS (PLATELETS, HUMAN BLOOD) [Suspect]
     Dosage: ONCE, INTRAVENOUS
     Route: 042
     Dates: start: 19891112
  67. PLATELETS (PLATELETS, HUMAN BLOOD) [Suspect]
     Dosage: ONCE, INTRAVENOUS
     Route: 042
     Dates: start: 19891112
  68. PLATELETS (PLATELETS, HUMAN BLOOD) [Suspect]
     Dosage: ONCE, INTRAVENOUS
     Route: 042
     Dates: start: 19891112
  69. PLATELETS (PLATELETS, HUMAN BLOOD) [Suspect]
     Dosage: ONCE, INTRAVENOUS
     Route: 042
     Dates: start: 19891112
  70. PLATELETS (PLATELETS, HUMAN BLOOD) [Suspect]
     Dosage: ONCE, INTRAVENOUS
     Route: 042
     Dates: start: 19891112
  71. PLATELETS (PLATELETS, HUMAN BLOOD) [Suspect]
  72. PLATELETS (PLATELETS, HUMAN BLOOD) [Suspect]
  73. PLATELETS (PLATELETS, HUMAN BLOOD) [Suspect]
  74. PLATELETS (PLATELETS, HUMAN BLOOD) [Suspect]
  75. PLATELETS (PLATELETS, HUMAN BLOOD) [Suspect]
  76. PLATELETS (PLATELETS, HUMAN BLOOD) [Suspect]
  77. PLATELETS (PLATELETS, HUMAN BLOOD) [Suspect]
  78. PLATELETS (PLATELETS, HUMAN BLOOD) [Suspect]
  79. PLATELETS (PLATELETS, HUMAN BLOOD) [Suspect]
  80. PLATELETS (PLATELETS, HUMAN BLOOD) [Suspect]
  81. PLATELETS (PLATELETS, HUMAN BLOOD) [Suspect]
  82. PLATELETS (PLATELETS, HUMAN BLOOD) [Suspect]
  83. PLATELETS (PLATELETS, HUMAN BLOOD) [Suspect]
  84. PLATELETS (PLATELETS, HUMAN BLOOD) [Suspect]
  85. PLATELETS (PLATELETS, HUMAN BLOOD) [Suspect]
  86. PLATELETS (PLATELETS, HUMAN BLOOD) [Suspect]
  87. PLATELETS (PLATELETS, HUMAN BLOOD) [Suspect]
  88. PLATELETS (PLATELETS, HUMAN BLOOD) [Suspect]
  89. PLATELETS (PLATELETS, HUMAN BLOOD) [Suspect]
  90. PLATELETS (PLATELETS, HUMAN BLOOD) [Suspect]
  91. PLATELETS (PLATELETS, HUMAN BLOOD) [Suspect]
  92. PLATELETS (PLATELETS, HUMAN BLOOD) [Suspect]
  93. PLATELETS (PLATELETS, HUMAN BLOOD) [Suspect]
  94. PLATELETS (PLATELETS, HUMAN BLOOD) [Suspect]
  95. PLATELETS (PLATELETS, HUMAN BLOOD) [Suspect]
  96. PLATELETS (PLATELETS, HUMAN BLOOD) [Suspect]
  97. PLATELETS (PLATELETS, HUMAN BLOOD) [Suspect]
  98. PLATELETS (PLATELETS, HUMAN BLOOD) [Suspect]
  99. PLATELETS (PLATELETS, HUMAN BLOOD) [Suspect]
  100. PLASMA PROTEIN FRACTION (HUMAN) [Suspect]
     Dosage: ONCE, INTRAVENOUS
     Route: 042
     Dates: start: 19891105
  101. PLASMA PROTEIN FRACTION (HUMAN) [Suspect]
     Dosage: ONCE, INTRAVENOUS
     Route: 042
     Dates: start: 19891105
  102. PLASMA PROTEIN FRACTION (HUMAN) [Suspect]
     Dosage: ONCE, INTRAVENOUS
     Route: 042
     Dates: start: 19891105
  103. PLASMA PROTEIN FRACTION (HUMAN) [Suspect]
     Dosage: ONCE, INTRAVENOUS
     Route: 042
     Dates: start: 19891105
  104. PLASMA PROTEIN FRACTION (HUMAN) [Suspect]
     Dosage: ONCE, INTRAVENOUS
     Route: 042
     Dates: start: 19891105
  105. PLASMA PROTEIN FRACTION (HUMAN) [Suspect]
     Dosage: ONCE, INTRAVENOUS
     Route: 042
     Dates: start: 19891105
  106. PLASMA PROTEIN FRACTION (HUMAN) [Suspect]
     Dosage: ONCE, INTRAVENOUS
     Route: 042
     Dates: start: 19891105
  107. PLASMA PROTEIN FRACTION (HUMAN) [Suspect]
  108. PLASMA PROTEIN FRACTION (HUMAN) [Suspect]
  109. PLASMA PROTEIN FRACTION (HUMAN) [Suspect]
  110. PLASMA PROTEIN FRACTION (HUMAN) [Suspect]
  111. PLASMA PROTEIN FRACTION (HUMAN) [Suspect]
  112. PLASMA PROTEIN FRACTION (HUMAN) [Suspect]
  113. RH IMMUNE GLOBULIN (IMMUNOGLOBULIN HUMAN ANTI-RH) [Suspect]
     Dosage: INTRAVENOUS
     Route: 042
     Dates: start: 19891109

REACTIONS (2)
  - HEPATITIS C ANTIBODY POSITIVE [None]
  - INDIRECT INFECTION TRANSMISSION [None]
